FAERS Safety Report 7048361-1 (Version None)
Quarter: 2010Q4

REPORT INFORMATION
  Report Type: 
  Country: None (occurrence: None)
  Receive Date: 20101015
  Receipt Date: 20101007
  Transmission Date: 20110411
  Serious: Yes (Other)
  Sender: FDA-Public Use
  Company Number: US-PURDUE-USA-2010-0048959

PATIENT
  Sex: Female

DRUGS (2)
  1. OXYCONTIN [Suspect]
     Indication: KNEE ARTHROPLASTY
     Dosage: 60 MG, TID
  2. OXYCONTIN [Concomitant]
     Indication: KNEE ARTHROPLASTY

REACTIONS (5)
  - CHOKING [None]
  - DRUG INEFFECTIVE [None]
  - FOREIGN BODY [None]
  - MUSCLE SPASMS [None]
  - PAIN IN EXTREMITY [None]
